FAERS Safety Report 10305013 (Version 1)
Quarter: 2014Q3

REPORT INFORMATION
  Report Type: Spontaneous
  Country: US (occurrence: None)
  Receive Date: 20140711
  Receipt Date: 20140711
  Transmission Date: 20150326
  Serious: Yes (Life-Threatening)
  Sender: FDA-Public Use
  Company Number: None

PATIENT
  Age: 55 Year
  Sex: Female

DRUGS (1)
  1. VISTARIL [Suspect]
     Active Substance: HYDROXYZINE PAMOATE
     Indication: AGITATION
     Dosage: 2 CAP 1 TIME ORAL
     Route: 048

REACTIONS (1)
  - Anaphylactic shock [None]

NARRATIVE: CASE EVENT DATE: 20140628
